FAERS Safety Report 4700842-9 (Version None)
Quarter: 2005Q2

REPORT INFORMATION
  Report Type: 
  Country: None (occurrence: None)
  Receive Date: 20050209
  Receipt Date: 20050209
  Transmission Date: 20051028
  Serious: Yes (Other)
  Sender: FDA-Public Use
  Company Number: None

PATIENT
  Sex: Female
  Weight: 63.5036 kg

DRUGS (2)
  1. GENERIC BUMETANIDE [Suspect]
     Indication: CARDIAC FAILURE CONGESTIVE
     Dosage: 1MG 1 PO DAILY
     Route: 048
  2. GENERIC BUMETANIDE [Suspect]
     Indication: OEDEMA PERIPHERAL
     Dosage: 1MG 1 PO DAILY
     Route: 048

REACTIONS (5)
  - DIZZINESS [None]
  - FAECES DISCOLOURED [None]
  - FATIGUE [None]
  - HEADACHE [None]
  - NAUSEA [None]
